FAERS Safety Report 10073714 (Version 2)
Quarter: 2014Q2

REPORT INFORMATION
  Report Type: Spontaneous
  Country: US (occurrence: US)
  Receive Date: 20140411
  Receipt Date: 20140616
  Transmission Date: 20141212
  Serious: No
  Sender: FDA-Public Use
  Company Number: US-009507513-1404USA002578

PATIENT
  Sex: Male
  Weight: 90.7 kg

DRUGS (8)
  1. CLARITIN [Suspect]
     Indication: RHINORRHOEA
     Dosage: 10 MG, QAM
     Route: 048
     Dates: start: 20140323, end: 20140331
  2. CLARITIN [Suspect]
     Indication: SNEEZING
  3. MIRTAZAPINE [Concomitant]
     Indication: DEPRESSION
     Dosage: 60 MG, QPM
  4. BUSPIRONE HYDROCHLORIDE [Concomitant]
     Indication: ANXIETY
     Dosage: 15 MG, BID
  5. OMEGA-3 MARINE TRIGLYCERIDES [Concomitant]
     Indication: PRODUCT USED FOR UNKNOWN INDICATION
     Dosage: UNK, UNKNOWN
  6. SAW PALMETTO [Concomitant]
     Indication: PRODUCT USED FOR UNKNOWN INDICATION
     Dosage: UNK, UNKNOWN
  7. CALTRATE VITAMINE D3 [Concomitant]
     Indication: PRODUCT USED FOR UNKNOWN INDICATION
     Dosage: UNK, UNKNOWN
  8. CENTRUM SILVER [Concomitant]
     Indication: PRODUCT USED FOR UNKNOWN INDICATION
     Dosage: UNK, UNKNOWN

REACTIONS (1)
  - Drug ineffective [Unknown]
